FAERS Safety Report 18683879 (Version 3)
Quarter: 2021Q1

REPORT INFORMATION
  Report Type: Spontaneous
  Country: GB (occurrence: GB)
  Receive Date: 20201230
  Receipt Date: 20210315
  Transmission Date: 20210419
  Serious: Yes (Other)
  Sender: FDA-Public Use
  Company Number: GB-009507513-2012GBR012427

PATIENT
  Age: 60 Year
  Sex: Female
  Weight: 55.33 kg

DRUGS (4)
  1. AZATHIOPRINE. [Concomitant]
     Active Substance: AZATHIOPRINE
  2. ADALIMUMAB [Concomitant]
     Active Substance: ADALIMUMAB
     Dates: start: 202010
  3. SITAGLIPTIN PHOSPHATE [Suspect]
     Active Substance: SITAGLIPTIN PHOSPHATE
     Indication: TYPE 2 DIABETES MELLITUS
     Dosage: 100 MG
     Route: 048
     Dates: start: 20200609, end: 20201202
  4. SALOFALK [Concomitant]

REACTIONS (5)
  - Disturbance in attention [Recovered/Resolved]
  - Confusional state [Recovered/Resolved]
  - Dizziness [Recovered/Resolved]
  - Fatigue [Recovered/Resolved]
  - Somnolence [Recovered/Resolved]

NARRATIVE: CASE EVENT DATE: 20200609
